FAERS Safety Report 20000973 (Version 6)
Quarter: 2023Q1

REPORT INFORMATION
  Report Type: Report from Study
  Country: MX (occurrence: MX)
  Receive Date: 20211027
  Receipt Date: 20230307
  Transmission Date: 20230418
  Serious: Yes (Other)
  Sender: FDA-Public Use
  Company Number: MX-NOVARTISPH-NVSC2021MX198712

PATIENT
  Age: 47 Year
  Sex: Female
  Weight: 95 kg

DRUGS (3)
  1. GILENYA [Suspect]
     Active Substance: FINGOLIMOD HYDROCHLORIDE
     Indication: Multiple sclerosis
     Dosage: 0.5 MG, QD, BY MOUTH
     Route: 048
     Dates: start: 202107
  2. GILENYA [Suspect]
     Active Substance: FINGOLIMOD HYDROCHLORIDE
     Dosage: 1 DOSAGE FORM, QD (0.5MG)
     Route: 048
     Dates: start: 202108, end: 202210
  3. GILENYA [Suspect]
     Active Substance: FINGOLIMOD HYDROCHLORIDE
     Dosage: 1 DOSAGE FORM, QD (0.5MG)
     Route: 048
     Dates: start: 202301

REACTIONS (9)
  - Multiple sclerosis relapse [Recovering/Resolving]
  - Peripheral swelling [Recovering/Resolving]
  - Depression [Not Recovered/Not Resolved]
  - Eating disorder [Unknown]
  - Mood altered [Unknown]
  - Trigeminal neuralgia [Recovering/Resolving]
  - Insomnia [Unknown]
  - Rheumatoid arthritis [Not Recovered/Not Resolved]
  - Product availability issue [Unknown]

NARRATIVE: CASE EVENT DATE: 20210801
